FAERS Safety Report 24784899 (Version 1)
Quarter: 2024Q4

REPORT INFORMATION
  Report Type: Report from Study
  Country: US (occurrence: US)
  Receive Date: 20241228
  Receipt Date: 20241228
  Transmission Date: 20250115
  Serious: Yes (Other)
  Sender: AMGEN
  Company Number: US-AMGEN-USASL2024250274

PATIENT
  Age: 48 Year
  Sex: Female
  Weight: 59.9 kg

DRUGS (15)
  1. ENBREL [Suspect]
     Active Substance: ETANERCEPT
     Indication: Rheumatoid arthritis
     Dosage: 50 MILLIGRAM, QWK
     Route: 065
     Dates: start: 202403
  2. IRON [Concomitant]
     Active Substance: IRON
     Dosage: UNK
     Route: 065
  3. TORADOL [Concomitant]
     Active Substance: KETOROLAC TROMETHAMINE
     Dosage: UNK
     Route: 030
  4. AJOVY [Concomitant]
     Active Substance: FREMANEZUMAB-VFRM
     Dosage: 225 MILLIGRAM, QMO
     Route: 065
  5. XANAX [Concomitant]
     Active Substance: ALPRAZOLAM
     Dosage: 0.25 MILLIGRAM
     Route: 065
  6. CLEOCIN T [Concomitant]
     Active Substance: CLINDAMYCIN PHOSPHATE
     Dosage: UNK
     Route: 065
  7. NIZORAL [Concomitant]
     Active Substance: KETOCONAZOLE
     Dosage: UNK
  8. LASMIDITAN SUCCINATE [Concomitant]
     Active Substance: LASMIDITAN SUCCINATE
     Dosage: 100 MILLIGRAM, QD
     Route: 048
  9. MOTEGRITY [Concomitant]
     Active Substance: PRUCALOPRIDE SUCCINATE
     Dosage: 2 MILLIGRAM
     Route: 065
  10. MOUNJARO [Concomitant]
     Active Substance: TIRZEPATIDE
     Dosage: UNK
     Route: 065
  11. ALDACTONE [Concomitant]
     Active Substance: SPIRONOLACTONE
     Dosage: 50 MILLIGRAM
     Route: 065
  12. ULTRAM [Concomitant]
     Active Substance: TRAMADOL HYDROCHLORIDE
     Indication: Pain
     Dosage: 50 MILLIGRAM, TID (IF NEEDED)
     Route: 048
  13. DESYREL [Concomitant]
     Active Substance: TRAZODONE HYDROCHLORIDE
     Dosage: 100 MILLIGRAM
     Route: 065
  14. VIBRA-TABS [Concomitant]
     Active Substance: DOXYCYCLINE HYCLATE
     Dosage: 100 MILLIGRAM
     Route: 065
  15. ROBAXIN [Concomitant]
     Active Substance: METHOCARBAMOL
     Dosage: 750 MILLIGRAM, TID
     Route: 048

REACTIONS (10)
  - Immunosuppression [Unknown]
  - Rheumatoid arthritis [Not Recovered/Not Resolved]
  - Bronchitis [Not Recovered/Not Resolved]
  - Constipation [Unknown]
  - Headache [Unknown]
  - Neck pain [Unknown]
  - Neuralgia [Unknown]
  - Vitamin B12 deficiency [Unknown]
  - Serum ferritin decreased [Unknown]
  - Muscular weakness [Unknown]

NARRATIVE: CASE EVENT DATE: 20240101
